FAERS Safety Report 4988663-3 (Version None)
Quarter: 2006Q2

REPORT INFORMATION
  Report Type: 
  Country: None (occurrence: None)
  Receive Date: 20060502
  Receipt Date: 20060421
  Transmission Date: 20061013
  Serious: Yes (Death, Other)
  Sender: FDA-Public Use
  Company Number: US-MERCK-0604USA03799

PATIENT
  Sex: Female

DRUGS (2)
  1. VIOXX [Suspect]
     Route: 048
  2. BEXTRA [Suspect]
     Route: 065

REACTIONS (7)
  - ANXIETY [None]
  - CEREBROVASCULAR ACCIDENT [None]
  - DEATH [None]
  - EMOTIONAL DISORDER [None]
  - MYOCARDIAL INFARCTION [None]
  - PAIN [None]
  - THROMBOSIS [None]
